FAERS Safety Report 13564028 (Version 2)
Quarter: 2017Q2

REPORT INFORMATION
  Report Type: Spontaneous
  Country: US (occurrence: US)
  Receive Date: 20170519
  Receipt Date: 20170619
  Transmission Date: 20170830
  Serious: No
  Sender: FDA-Public Use
  Company Number: US-GLAXOSMITHKLINE-US2017073529

PATIENT
  Sex: Male

DRUGS (1)
  1. VENTOLIN HFA [Suspect]
     Active Substance: ALBUTEROL SULFATE
     Indication: PULMONARY FIBROSIS
     Dosage: 2 PUFF(S), BID
     Route: 055

REACTIONS (4)
  - Wrong technique in product usage process [Unknown]
  - Product cleaning inadequate [Unknown]
  - Device use error [Unknown]
  - Product use in unapproved indication [Unknown]
